FAERS Safety Report 7171018-3 (Version None)
Quarter: 2010Q4

REPORT INFORMATION
  Report Type: 
  Country: None (occurrence: None)
  Receive Date: 20101217
  Receipt Date: 20101210
  Transmission Date: 20110411
  Serious: No
  Sender: FDA-Public Use
  Company Number: FI-ASTRAZENECA-2010SE59161

PATIENT
  Age: 56 Year
  Sex: Male

DRUGS (6)
  1. SEROQUEL XR [Suspect]
     Indication: PSYCHOTIC DISORDER
     Route: 048
     Dates: start: 20091001
  2. SEROQUEL XR [Suspect]
     Route: 048
     Dates: end: 20100517
  3. ZYPREXA [Concomitant]
  4. LITO [Concomitant]
     Dosage: 1+2 TABLETS PER DAY
     Route: 048
  5. TENOX [Concomitant]
     Route: 048
  6. OPAMOX [Concomitant]
     Route: 048

REACTIONS (1)
  - NEUTROPENIA [None]
